FAERS Safety Report 16654031 (Version 1)
Quarter: 2019Q3

REPORT INFORMATION
  Report Type: Report from Study
  Country: US (occurrence: US)
  Receive Date: 20190731
  Receipt Date: 20190731
  Transmission Date: 20191004
  Serious: Yes (Hospitalization)
  Sender: FDA-Public Use
  Company Number: US-GILEAD-2019-0421174

PATIENT
  Age: 81 Year
  Sex: Female

DRUGS (10)
  1. IRBESARTAN. [Concomitant]
     Active Substance: IRBESARTAN
     Dosage: TAB 75MG
     Dates: start: 20180806
  2. TERAZOSIN [Concomitant]
     Active Substance: TERAZOSIN HYDROCHLORIDE
  3. IDELALISIB [Suspect]
     Active Substance: IDELALISIB
     Indication: CHRONIC LYMPHOCYTIC LEUKAEMIA
     Dosage: UNK, BID
     Route: 048
     Dates: start: 20190517
  4. CARVEDILOL. [Concomitant]
     Active Substance: CARVEDILOL
     Dosage: TAB 3.125MG
     Dates: start: 20170331
  5. VALSARTAN. [Concomitant]
     Active Substance: VALSARTAN
     Dosage: TAB 40MG
     Dates: start: 20181022
  6. MULTAQ [Concomitant]
     Active Substance: DRONEDARONE
     Dosage: TAB 400MG
     Dates: start: 20170331
  7. LEVOTHYROXINE SODIUM. [Concomitant]
     Active Substance: LEVOTHYROXINE SODIUM
     Dosage: TAB 150MCG
     Dates: start: 20170331
  8. DIGOXIN. [Concomitant]
     Active Substance: DIGOXIN
     Dosage: TAB 0.125MG
     Dates: start: 20190625
  9. NORVASC [Concomitant]
     Active Substance: AMLODIPINE BESYLATE
     Dosage: TAB 2.5MG
     Dates: start: 20170331
  10. ASPIRIN [ACETYLSALICYLIC ACID] [Concomitant]
     Active Substance: ASPIRIN
     Dosage: TAB 325MG
     Dates: start: 20170331

REACTIONS (3)
  - Unevaluable event [Unknown]
  - Cardiac disorder [Unknown]
  - Ill-defined disorder [Unknown]
